FAERS Safety Report 23653378 (Version 1)
Quarter: 2024Q1

REPORT INFORMATION
  Report Type: Spontaneous
  Country: US (occurrence: US)
  Receive Date: 20240320
  Receipt Date: 20240320
  Transmission Date: 20240410
  Serious: No
  Sender: FDA-Public Use
  Company Number: US-TRIS PHARMA, INC.-24US011389

PATIENT

DRUGS (3)
  1. DEXMETHYLPHENIDATE HYDROCHLORIDE [Suspect]
     Active Substance: DEXMETHYLPHENIDATE HYDROCHLORIDE
     Indication: Attention deficit hyperactivity disorder
     Dosage: 5 MILLIGRAM, BID (AT 8 AM AND NOON)
     Route: 048
  2. DEXMETHYLPHENIDATE HYDROCHLORIDE [Suspect]
     Active Substance: DEXMETHYLPHENIDATE HYDROCHLORIDE
     Dosage: 5 MILLIGRAM, QD
     Route: 048
  3. GUANFACINE [Suspect]
     Active Substance: GUANFACINE
     Indication: Hypertension
     Dosage: UNK

REACTIONS (2)
  - Dark circles under eyes [Unknown]
  - Off label use [Unknown]
